FAERS Safety Report 19036067 (Version 2)
Quarter: 2021Q3

REPORT INFORMATION
  Report Type: Spontaneous
  Country: US (occurrence: US)
  Receive Date: 20210321
  Receipt Date: 20210706
  Transmission Date: 20211014
  Serious: Yes (Life-Threatening, Hospitalization)
  Sender: FDA-Public Use
  Company Number: US-TEVA-2021-US-1890792

PATIENT
  Age: 35 Year
  Sex: Female

DRUGS (2)
  1. EPINEPHRINE. [Suspect]
     Active Substance: EPINEPHRINE
     Indication: CARDIAC ARREST
     Route: 065
  2. VENLAFAXINE [Suspect]
     Active Substance: VENLAFAXINE HYDROCHLORIDE
     Indication: INTENTIONAL OVERDOSE
     Route: 065

REACTIONS (9)
  - Ventricular tachycardia [Recovering/Resolving]
  - Hypoxic-ischaemic encephalopathy [Recovered/Resolved]
  - Mydriasis [Recovered/Resolved]
  - Drug ineffective [Unknown]
  - Acute kidney injury [Unknown]
  - Cardiac arrest [Recovering/Resolving]
  - Status epilepticus [Recovered/Resolved]
  - Ischaemic hepatitis [Unknown]
  - Intentional overdose [Unknown]
